FAERS Safety Report 23498456 (Version 2)
Quarter: 2024Q2

REPORT INFORMATION
  Report Type: Report from Study
  Country: US (occurrence: US)
  Receive Date: 20240207
  Receipt Date: 20240628
  Transmission Date: 20240716
  Serious: Yes (Hospitalization)
  Sender: FDA-Public Use
  Company Number: US-ABBVIE-5484722

PATIENT
  Sex: Female

DRUGS (7)
  1. SKYRIZI [Suspect]
     Active Substance: RISANKIZUMAB-RZAA
     Indication: Crohn^s disease
     Dosage: STRENGTH: 360MG/2.4M?WEEK 12
     Route: 058
     Dates: start: 20230929, end: 20230929
  2. SKYRIZI [Suspect]
     Active Substance: RISANKIZUMAB-RZAA
     Dosage: FORM STRENGTH: 360 MILLIGRAM?CARTRIDGE
     Route: 058
  3. SKYRIZI [Suspect]
     Active Substance: RISANKIZUMAB-RZAA
     Indication: Crohn^s disease
     Dosage: TIME INTERVAL: TOTAL: WEEK 0?FORM STRENGTH: 600 MILLIGRAM
     Route: 042
     Dates: start: 202306, end: 202306
  4. SKYRIZI [Suspect]
     Active Substance: RISANKIZUMAB-RZAA
     Indication: Crohn^s disease
     Dosage: TIME INTERVAL: TOTAL: WEEK 4 X 3 DOSES??LAST ADMIN DATE: 2023?FORM STRENGTH: 600 MILLIGRAM
     Route: 042
     Dates: start: 202306
  5. SKYRIZI [Suspect]
     Active Substance: RISANKIZUMAB-RZAA
     Indication: Crohn^s disease
     Dosage: TIME INTERVAL: TOTAL: WEEK 8?FIRST ADMIN DATE: 2023?LAST ADMIN DATE: 2023?FORM STRENGTH: 600 MILL...
     Route: 042
  6. SKYRIZI [Suspect]
     Active Substance: RISANKIZUMAB-RZAA
     Indication: Crohn^s disease
     Dosage: TIME INTERVAL: TOTAL: WEEK 8
     Route: 042
     Dates: start: 20240515, end: 20240515
  7. SKYRIZI [Suspect]
     Active Substance: RISANKIZUMAB-RZAA
     Indication: Crohn^s disease
     Dosage: TIME INTERVAL: TOTAL: RESTARTED?WEEK 0
     Route: 042
     Dates: start: 2024, end: 2024

REACTIONS (27)
  - Vomiting [Recovering/Resolving]
  - Hyperhidrosis [Unknown]
  - Back pain [Unknown]
  - Abscess oral [Not Recovered/Not Resolved]
  - Emotional disorder [Unknown]
  - Product storage error [Unknown]
  - Frequent bowel movements [Unknown]
  - Drug ineffective [Unknown]
  - Dizziness [Unknown]
  - Haematochezia [Unknown]
  - Gastrointestinal sounds abnormal [Recovered/Resolved]
  - Fatigue [Recovered/Resolved]
  - Urinary tract infection [Unknown]
  - Nausea [Not Recovered/Not Resolved]
  - Gait disturbance [Unknown]
  - Pain [Unknown]
  - Flatulence [Unknown]
  - Pain in extremity [Unknown]
  - Asthenia [Recovered/Resolved]
  - Crohn^s disease [Unknown]
  - Feeling abnormal [Unknown]
  - Ulcer [Unknown]
  - Hiatus hernia [Unknown]
  - Injection site discomfort [Unknown]
  - Asthenia [Unknown]
  - Fatigue [Unknown]
  - Gastrointestinal sounds abnormal [Unknown]

NARRATIVE: CASE EVENT DATE: 20230101
